FAERS Safety Report 24527313 (Version 1)
Quarter: 2024Q4

REPORT INFORMATION
  Report Type: Report from Study
  Country: US (occurrence: US)
  Receive Date: 20241021
  Receipt Date: 20241021
  Transmission Date: 20250115
  Serious: No
  Sender: ROCHE
  Company Number: US-ROCHE-3570838

PATIENT
  Age: 80 Year
  Sex: Female

DRUGS (2)
  1. COTELLIC [Suspect]
     Active Substance: COBIMETINIB
     Indication: Histiocytosis
     Dosage: TAKE 2 TABLET(S) BY MOUTH (40MG TOTAL) DAILY FOR 21 DAYS OF EACH 28 DAY CYCLE
     Route: 048
  2. RITUXIMAB [Suspect]
     Active Substance: RITUXIMAB
     Indication: Histiocytosis
     Route: 065

REACTIONS (1)
  - Drug hypersensitivity [Unknown]
